FAERS Safety Report 6073939-1 (Version None)
Quarter: 2009Q1

REPORT INFORMATION
  Report Type: 
  Country: None (occurrence: None)
  Receive Date: 20090209
  Receipt Date: 20090209
  Transmission Date: 20090719
  Serious: Yes (Other)
  Sender: FDA-Public Use
  Company Number: None

PATIENT
  Age: 25 Year
  Sex: Female
  Weight: 68 kg

DRUGS (1)
  1. ROAACUTANE ? ROCHE [Suspect]
     Indication: ACNE
     Dosage: OD PO
     Route: 048
     Dates: start: 20000101, end: 20000501

REACTIONS (6)
  - DRY SKIN [None]
  - ERYTHEMA [None]
  - PREMATURE AGEING [None]
  - PRURITUS [None]
  - SKIN DISORDER [None]
  - SKIN IRRITATION [None]
